FAERS Safety Report 9409420 (Version 3)
Quarter: 2013Q2

REPORT INFORMATION
  Report Type: Spontaneous
  Country: US (occurrence: None)
  Receive Date: 20130418
  Receipt Date: 20130517
  Transmission Date: 20140414
  Serious: Yes (Other)
  Sender: FDA-Public Use
  Company Number: 2012P1066522

PATIENT
  Age: 57 Year
  Sex: Female

DRUGS (4)
  1. INFUMORPH [Suspect]
     Indication: COMPLEX REGIONAL PAIN SYNDROME
  2. INFUMORPH [Suspect]
     Indication: PAIN
  3. CLONIDINE [Suspect]
     Indication: COMPLEX REGIONAL PAIN SYNDROME
  4. CLONIDINE [Suspect]
     Indication: PAIN

REACTIONS (3)
  - Implant site infection [None]
  - Device dislocation [None]
  - Activities of daily living impaired [None]
